FAERS Safety Report 6427583-4 (Version None)
Quarter: 2009Q4

REPORT INFORMATION
  Report Type: 
  Country: None (occurrence: None)
  Receive Date: 20091027
  Receipt Date: 20091013
  Transmission Date: 20100525
  Serious: Yes (Death, Other)
  Sender: FDA-Public Use
  Company Number: 2007314448

PATIENT
  Age: 16 Month
  Sex: Male

DRUGS (5)
  1. PSEUDOEPHEDRINE HCL [Suspect]
  2. ACETAMINOPHEN [Suspect]
  3. CHLORPHENIRAMINE MALEATE [Suspect]
  4. DEXTROMETHORPHAN HYDROBROMIDE [Suspect]
  5. ETHANOL (ETHANOL) [Suspect]

REACTIONS (2)
  - ANOXIC ENCEPHALOPATHY [None]
  - DRUG TOXICITY [None]
